FAERS Safety Report 9667751 (Version 2)
Quarter: 2013Q4

REPORT INFORMATION
  Report Type: Spontaneous
  Country: JP (occurrence: JP)
  Receive Date: 20131104
  Receipt Date: 20131104
  Transmission Date: 20140711
  Serious: Yes (Hospitalization)
  Sender: FDA-Public Use
  Company Number: JP-TAKEDA-TCI2011A01999

PATIENT
  Age: 51 Year
  Sex: Female
  Weight: 65 kg

DRUGS (3)
  1. NESINA TABLETS 25MG [Suspect]
     Indication: DIABETES MELLITUS
     Dosage: 25 MG, QD
     Route: 048
     Dates: start: 20110301, end: 20110307
  2. NORVASC [Concomitant]
     Indication: HYPERTENSION
     Dosage: 2.5 MG, QD
     Route: 048
     Dates: end: 20110307
  3. DIOVAN [Concomitant]
     Indication: HYPERTENSION
     Dosage: 80 MG, QD
     Route: 048
     Dates: end: 20110307

REACTIONS (1)
  - Erythema multiforme [Recovered/Resolved]
